FAERS Safety Report 8111150-0 (Version None)
Quarter: 2012Q1

REPORT INFORMATION
  Report Type: 
  Country: None (occurrence: None)
  Receive Date: 20120203
  Receipt Date: 20110517
  Transmission Date: 20120608
  Serious: No
  Sender: FDA-Public Use
  Company Number: US-GLAXOSMITHKLINE-A0927625A

PATIENT
  Age: 48 Year
  Sex: Male

DRUGS (2)
  1. NO CONCURRENT MEDICATION [Concomitant]
  2. LAMICTAL [Suspect]
     Indication: BIPOLAR DISORDER
     Dosage: 100MG PER DAY
     Route: 048
     Dates: start: 20110407

REACTIONS (8)
  - HEADACHE [None]
  - NERVOUSNESS [None]
  - INSOMNIA [None]
  - BALANCE DISORDER [None]
  - DIZZINESS [None]
  - DRY MOUTH [None]
  - COORDINATION ABNORMAL [None]
  - FATIGUE [None]
